FAERS Safety Report 6341882-6 (Version None)
Quarter: 2009Q3

REPORT INFORMATION
  Report Type: 
  Country: None (occurrence: None)
  Receive Date: 20090903
  Receipt Date: 20090824
  Transmission Date: 20100115
  Serious: Yes (Hospitalization)
  Sender: FDA-Public Use
  Company Number: 2009AL005683

PATIENT
  Age: 80 Year
  Sex: Female

DRUGS (16)
  1. SERTRALINE HYDROCHLORIDE [Suspect]
     Dosage: 50 MG
  2. FUROSEMIDE [Concomitant]
  3. ASS HEXEL [Concomitant]
  4. CLYSMOL [Concomitant]
  5. BISOPROLOL FUMARATE [Concomitant]
  6. DANCOR [Concomitant]
  7. ENAC [Concomitant]
  8. EUTHYROX [Concomitant]
  9. HALCION [Concomitant]
  10. METOGASTRON [Concomitant]
  11. NITROLINGUAL [Concomitant]
  12. NOVALGIN [Concomitant]
  13. OMEC [Concomitant]
  14. PLAVIX [Concomitant]
  15. SIMVASTATIN [Concomitant]
  16. SPIRONO [Concomitant]

REACTIONS (2)
  - GENERAL PHYSICAL HEALTH DETERIORATION [None]
  - HYPONATRAEMIA [None]
